FAERS Safety Report 18400240 (Version 2)
Quarter: 2020Q4

REPORT INFORMATION
  Report Type: Spontaneous
  Country: US (occurrence: US)
  Receive Date: 20201019
  Receipt Date: 20201026
  Transmission Date: 20210114
  Serious: No
  Sender: FDA-Public Use
  Company Number: US-PFIZER INC-2020400891

PATIENT
  Age: 64 Year
  Sex: Female

DRUGS (2)
  1. DUAVEE [Suspect]
     Active Substance: BAZEDOXIFENE ACETATE\ESTROGENS, CONJUGATED
     Indication: MENOPAUSE
     Dosage: 2 DF, DAILY (SHE WAS TAKING 2 PER DAY)
  2. DUAVEE [Suspect]
     Active Substance: BAZEDOXIFENE ACETATE\ESTROGENS, CONJUGATED
     Indication: HORMONE REPLACEMENT THERAPY
     Dosage: 1 DF, DAILY (SHE TAKES ONE TABLET PER DAY BY MOUTH)
     Route: 048

REACTIONS (2)
  - Off label use [Unknown]
  - Memory impairment [Unknown]
